FAERS Safety Report 8452537-6 (Version None)
Quarter: 2012Q2

REPORT INFORMATION
  Report Type: 
  Country: None (occurrence: None)
  Receive Date: 20120620
  Receipt Date: 20120415
  Transmission Date: 20120825
  Serious: No
  Sender: FDA-Public Use
  Company Number: US-VERTEX PHARMACEUTICALS INC.-AE-2012-005422

PATIENT
  Sex: Female
  Weight: 77.18 kg

DRUGS (4)
  1. INCIVEK [Suspect]
     Indication: HEPATITIS C
     Route: 048
     Dates: start: 20120123, end: 20120413
  2. PEGASYS [Concomitant]
     Indication: HEPATITIS C
     Route: 058
     Dates: start: 20120123
  3. COPEGUS [Concomitant]
     Indication: HEPATITIS C
     Route: 048
     Dates: start: 20120123, end: 20120314
  4. COPEGUS [Concomitant]
     Route: 048
     Dates: start: 20120315

REACTIONS (2)
  - BLOOD COUNT ABNORMAL [None]
  - FEELING ABNORMAL [None]
